FAERS Safety Report 7450030-0 (Version None)
Quarter: 2011Q2

REPORT INFORMATION
  Report Type: 
  Country: None (occurrence: None)
  Receive Date: 20110502
  Receipt Date: 20090316
  Transmission Date: 20111010
  Serious: Yes (Other)
  Sender: FDA-Public Use
  Company Number: US-BAYER-200915570NA

PATIENT
  Sex: Male
  Weight: 107.94 kg

DRUGS (13)
  1. TRASYLOL [Suspect]
     Indication: AORTIC ANEURYSM
     Dosage: 200 ML PUMP PRIME FOLLOWED BY AN INFUSION AT AN UNKNOWN RATE
     Dates: start: 20020923, end: 20020923
  2. TRASYLOL [Suspect]
     Indication: AORTIC VALVE REPLACEMENT
  3. COUMADIN [Concomitant]
     Dosage: 5 MG, QD
     Route: 048
  4. TOPROL-XL [Concomitant]
     Dosage: 50 MG, QD
     Route: 048
  5. VYTORIN [Concomitant]
     Dosage: 10/20 MG AT HOUR OF BED
     Route: 048
  6. CEFAZOLIN SODIUM [Concomitant]
     Dosage: 1 G, UNK
     Route: 042
     Dates: start: 20020923
  7. TRASYLOL [Suspect]
     Indication: MITRAL VALVE REPLACEMENT
  8. INSULIN HUMAN [Concomitant]
  9. ACETYLSALICYLIC ACID SRT [Concomitant]
     Dosage: 81 MG, QD
     Route: 048
  10. HEPARIN [Concomitant]
     Indication: ANTICOAGULANT THERAPY
     Dosage: 3 MG./KG
     Route: 042
     Dates: start: 20020923
  11. DOBUTAMINE HYDROCHLORIDE [Concomitant]
     Dosage: 250 MG, UNK
     Route: 042
     Dates: start: 20020923
  12. LISINOPRIL [Concomitant]
     Dosage: 40 MG, QD
     Route: 048
     Dates: start: 19970101
  13. TRASYLOL [Suspect]
     Indication: MITRAL VALVE REPAIR

REACTIONS (9)
  - ANHEDONIA [None]
  - UNEVALUABLE EVENT [None]
  - PAIN [None]
  - DEPRESSION [None]
  - ANXIETY [None]
  - FEAR [None]
  - CEREBROVASCULAR ACCIDENT [None]
  - RENAL FAILURE [None]
  - INJURY [None]
